FAERS Safety Report 21284970 (Version 2)
Quarter: 2022Q3

REPORT INFORMATION
  Report Type: Spontaneous
  Country: US (occurrence: None)
  Receive Date: 20220902
  Receipt Date: 20220905
  Transmission Date: 20221027
  Serious: Yes (Other)
  Sender: FDA-Public Use
  Company Number: US-ROCHE-3170745

PATIENT
  Age: 85 Year
  Sex: Male

DRUGS (2)
  1. XOLAIR [Suspect]
     Active Substance: OMALIZUMAB
     Indication: Product used for unknown indication
     Dosage: 3 DOSES WITH A ONE-MONTH GAP BETWEEN THE FIRST ONE. ONGOING: UNKNOWN
     Route: 065
  2. ALBUTEROL [Concomitant]
     Active Substance: ALBUTEROL
     Dosage: ONGOING: UNKNOWN

REACTIONS (3)
  - Suicide attempt [Unknown]
  - Depression [Unknown]
  - Asthma [Not Recovered/Not Resolved]
